FAERS Safety Report 8258460-4 (Version None)
Quarter: 2012Q2

REPORT INFORMATION
  Report Type: 
  Country: None (occurrence: None)
  Receive Date: 20120404
  Receipt Date: 20120330
  Transmission Date: 20120825
  Serious: Yes (Hospitalization)
  Sender: FDA-Public Use
  Company Number: FR-PFIZER INC-2012081121

PATIENT
  Age: 40 Year
  Sex: Female

DRUGS (1)
  1. TRIPHASIL-21 [Suspect]
     Dosage: 1 DF, 1X/DAY
     Route: 048
     Dates: end: 20120118

REACTIONS (1)
  - CEREBRAL INFARCTION [None]
